FAERS Safety Report 10756346 (Version 3)
Quarter: 2015Q1

REPORT INFORMATION
  Report Type: Spontaneous
  Country: JP (occurrence: JP)
  Receive Date: 20150202
  Receipt Date: 20150324
  Transmission Date: 20150721
  Serious: Yes (Hospitalization, Other)
  Sender: FDA-Public Use
  Company Number: JP-GLAXOSMITHKLINE-JP2014JPN042146

PATIENT
  Age: 49 Year
  Sex: Male
  Weight: 68 kg

DRUGS (5)
  1. MEILAX [Concomitant]
     Active Substance: ETHYL LOFLAZEPATE
     Indication: ANXIETY
     Dosage: 2 MG, QD
     Dates: start: 20130719
  2. LIMAS [Concomitant]
     Active Substance: LITHIUM CARBONATE
     Indication: AFFECTIVE DISORDER
     Dosage: 200 MG, BID
     Dates: start: 20120706
  3. LAMICTAL [Suspect]
     Active Substance: LAMOTRIGINE
     Dosage: 25 MG, BID
     Route: 048
     Dates: start: 20141202, end: 20141216
  4. LEXAPRO [Concomitant]
     Active Substance: ESCITALOPRAM OXALATE
     Indication: AFFECTIVE DISORDER
     Dosage: 20 MG, QD
     Dates: start: 20121130
  5. LAMICTAL [Suspect]
     Active Substance: LAMOTRIGINE
     Indication: BIPOLAR I DISORDER
     Dosage: 25 MG, QD
     Route: 048
     Dates: start: 20141118, end: 20141201

REACTIONS (13)
  - Ocular hyperaemia [Unknown]
  - Erythema of eyelid [Unknown]
  - Epidermal necrosis [Unknown]
  - Mouth ulceration [Recovering/Resolving]
  - Oral mucosa erosion [Recovering/Resolving]
  - Pyrexia [Unknown]
  - Stevens-Johnson syndrome [Recovered/Resolved]
  - Parakeratosis [Unknown]
  - Drug eruption [Recovering/Resolving]
  - Scab [Unknown]
  - Lip erosion [Unknown]
  - Erythema [Recovering/Resolving]
  - Skin degenerative disorder [Unknown]

NARRATIVE: CASE EVENT DATE: 20141212
